FAERS Safety Report 5677872-6 (Version None)
Quarter: 2008Q1

REPORT INFORMATION
  Report Type: 
  Country: None (occurrence: None)
  Receive Date: 20080319
  Receipt Date: 20080304
  Transmission Date: 20080703
  Serious: Yes (Hospitalization)
  Sender: FDA-Public Use
  Company Number: 232168J08USA

PATIENT
  Age: 47 Year
  Sex: Female
  Weight: 120.2032 kg

DRUGS (9)
  1. REBIF [Suspect]
     Indication: MULTIPLE SCLEROSIS
     Dosage: 44 MCG, 3 IN 1 WEEKS, SUBCUTANEOUS
     Route: 058
     Dates: start: 20070409
  2. XOPENEX [Concomitant]
  3. ADVAIR    (SERETIDE) [Concomitant]
  4. ZOLOFT [Concomitant]
  5. LYRICA [Concomitant]
  6. NEXIUM [Concomitant]
  7. VESICARE [Concomitant]
  8. CLONAZEPAM [Concomitant]
  9. TOPAMAX [Concomitant]

REACTIONS (8)
  - AMNESIA [None]
  - APHASIA [None]
  - CHRONIC OBSTRUCTIVE PULMONARY DISEASE [None]
  - FATIGUE [None]
  - INJECTION SITE REACTION [None]
  - NECK PAIN [None]
  - PULMONARY EMBOLISM [None]
  - SCIATICA [None]
